FAERS Safety Report 14696010 (Version 1)
Quarter: 2018Q1

REPORT INFORMATION
  Report Type: Spontaneous
  Country: GB (occurrence: GR)
  Receive Date: 20180329
  Receipt Date: 20180329
  Transmission Date: 20180509
  Serious: Yes (Life-Threatening)
  Sender: FDA-Public Use
  Company Number: GR-FRESENIUS KABI-FK201803687

PATIENT
  Age: 70 Year
  Sex: Female
  Weight: 100 kg

DRUGS (1)
  1. CEFUROXIME (MANUFACTURER UNKNOWN) [Suspect]
     Active Substance: CEFUROXIME
     Indication: CHRONIC RESPIRATORY DISEASE
     Route: 042
     Dates: start: 20171019

REACTIONS (8)
  - Loss of consciousness [Recovered/Resolved]
  - Confusional state [Recovered/Resolved]
  - Acute respiratory failure [Recovered/Resolved]
  - Gastrointestinal disorder [Recovered/Resolved]
  - Blood pressure decreased [Recovered/Resolved]
  - Heart rate decreased [Recovered/Resolved]
  - Anaphylactic shock [Recovered/Resolved]
  - Agitation [Recovered/Resolved]

NARRATIVE: CASE EVENT DATE: 20171019
